FAERS Safety Report 12570129 (Version 3)
Quarter: 2016Q4

REPORT INFORMATION
  Report Type: Spontaneous
  Country: US (occurrence: US)
  Receive Date: 20160719
  Receipt Date: 20161011
  Transmission Date: 20170207
  Serious: No
  Sender: FDA-Public Use
  Company Number: US-TEVA-667703USA

PATIENT
  Age: 45 Year
  Sex: Female

DRUGS (1)
  1. ZECUITY [Suspect]
     Active Substance: SUMATRIPTAN SUCCINATE
     Route: 062
     Dates: start: 20160604, end: 20160604

REACTIONS (10)
  - Application site rash [Unknown]
  - Application site discolouration [Not Recovered/Not Resolved]
  - Wound secretion [Not Recovered/Not Resolved]
  - Application site erythema [Unknown]
  - Application site swelling [Unknown]
  - Application site pain [Unknown]
  - Application site pruritus [Recovering/Resolving]
  - Application site vesicles [Unknown]
  - Application site irritation [Unknown]
  - Application site pain [Unknown]

NARRATIVE: CASE EVENT DATE: 20160604
